FAERS Safety Report 17854742 (Version 1)
Quarter: 2020Q2

REPORT INFORMATION
  Report Type: Report from Study
  Country: IT (occurrence: IT)
  Receive Date: 20200603
  Receipt Date: 20200603
  Transmission Date: 20200714
  Serious: Yes (Other)
  Sender: FDA-Public Use
  Company Number: IT-UCBSA-2020021523

PATIENT

DRUGS (2)
  1. CERTOLIZUMAB PEGOL [Suspect]
     Active Substance: CERTOLIZUMAB PEGOL
     Indication: PSORIATIC ARTHROPATHY
     Dosage: 200 MILLIGRAM, EV 2 WEEKS(QOW)
     Route: 058
  2. CERTOLIZUMAB PEGOL [Suspect]
     Active Substance: CERTOLIZUMAB PEGOL
     Indication: PSORIASIS
     Dosage: 400 MILLIGRAM, FOR 0,2 AND 4 WEEKS
     Route: 058

REACTIONS (7)
  - Paraganglion neoplasm [Unknown]
  - Urinary tract infection [Unknown]
  - Pneumonia [Unknown]
  - Breast cancer [Unknown]
  - Influenza [Unknown]
  - Psoriasis [Unknown]
  - Drug ineffective [Unknown]
